FAERS Safety Report 5203377-2 (Version None)
Quarter: 2007Q1

REPORT INFORMATION
  Report Type: 
  Country: None (occurrence: None)
  Receive Date: 20070105
  Receipt Date: 20061220
  Transmission Date: 20070707
  Serious: Yes (Hospitalization)
  Sender: FDA-Public Use
  Company Number: 6028416

PATIENT
  Age: 67 Year
  Sex: Male

DRUGS (5)
  1. METFORMIN HCL [Suspect]
     Indication: DIABETES MELLITUS NON-INSULIN-DEPENDENT
     Dosage: 850 MG (850 MG, 1 IN 1 D)
     Route: 048
  2. APROVEL (150 MG, FILM-COATED TABLET (IRBESARTAN) [Suspect]
     Indication: HYPERTENSION
     Dosage: 150 MG (150 MG,1 IN 1 D)
     Route: 048
     Dates: end: 20061201
  3. PERMIXON (160 MG, CAPSULE) (SERENOA REPENS) [Suspect]
     Indication: PROSTATIC DISORDER
     Dosage: 160 MG (160 MG, 1 IN 1 D)
     Route: 048
  4. OFLOXACIN [Suspect]
     Indication: DRUG USE FOR UNKNOWN INDICATION
  5. RIFADIN [Suspect]
     Indication: DRUG USE FOR UNKNOWN INDICATION

REACTIONS (2)
  - BLOOD CREATINE INCREASED [None]
  - HYPERKALAEMIA [None]
